FAERS Safety Report 25674731 (Version 2)
Quarter: 2025Q4

REPORT INFORMATION
  Report Type: Spontaneous
  Country: CA (occurrence: CA)
  Receive Date: 20250813
  Receipt Date: 20251007
  Transmission Date: 20260117
  Serious: Yes (Hospitalization)
  Sender: CELLTRION
  Company Number: CA-CELLTRION INC.-2025CA027345

PATIENT

DRUGS (2)
  1. INFLIXIMAB [Suspect]
     Active Substance: INFLIXIMAB
     Indication: Colitis ulcerative
     Dosage: 760.0 MILLIGRAM
     Route: 042
  2. INFLIXIMAB [Suspect]
     Active Substance: INFLIXIMAB
     Dosage: 10 MG/KG
     Route: 042

REACTIONS (6)
  - Fall [Recovered/Resolved]
  - Intervertebral disc injury [Recovered/Resolved]
  - Muscular weakness [Recovered/Resolved]
  - Spinal column injury [Recovered/Resolved]
  - Vein rupture [Recovered/Resolved]
  - Intentional product use issue [Unknown]
